FAERS Safety Report 10068838 (Version 1)
Quarter: 2014Q2

REPORT INFORMATION
  Report Type: Spontaneous
  Country: US (occurrence: US)
  Receive Date: 20140409
  Receipt Date: 20140409
  Transmission Date: 20141212
  Serious: Yes (Hospitalization)
  Sender: FDA-Public Use
  Company Number: PHHY2014US040679

PATIENT
  Age: 93 Year
  Sex: Female

DRUGS (6)
  1. RANIBIZUMAB [Suspect]
     Route: 031
  2. LEVETIRACETAM [Suspect]
     Indication: EPILEPSY
  3. AMLODIPINE [Concomitant]
     Dosage: 2.5 MG, DAILY
  4. LATANOPROST [Concomitant]
  5. PILOCARPINE [Concomitant]
  6. BETAXOLOL [Concomitant]

REACTIONS (9)
  - Delirium [Not Recovered/Not Resolved]
  - Mental status changes [Not Recovered/Not Resolved]
  - Confusional state [Not Recovered/Not Resolved]
  - Aggression [Not Recovered/Not Resolved]
  - Disturbance in attention [Not Recovered/Not Resolved]
  - Hallucination, visual [Not Recovered/Not Resolved]
  - Agitation [Not Recovered/Not Resolved]
  - Fall [Unknown]
  - Sedation [Unknown]
